FAERS Safety Report 7593722-5 (Version None)
Quarter: 2011Q3

REPORT INFORMATION
  Report Type: 
  Country: None (occurrence: None)
  Receive Date: 20110706
  Receipt Date: 20110622
  Transmission Date: 20111222
  Serious: Yes (Hospitalization)
  Sender: FDA-Public Use
  Company Number: PHHY2011JP55899

PATIENT
  Age: 76 Year
  Sex: Male

DRUGS (2)
  1. CARBAMAZEPINE [Suspect]
     Indication: COMPLEX PARTIAL SEIZURES
     Route: 048
  2. VALPROIC ACID [Concomitant]

REACTIONS (2)
  - INFECTION SUSCEPTIBILITY INCREASED [None]
  - RASH [None]
